FAERS Safety Report 23694907 (Version 3)
Quarter: 2024Q2

REPORT INFORMATION
  Report Type: Report from Study
  Country: US (occurrence: US)
  Receive Date: 20240402
  Receipt Date: 20240610
  Transmission Date: 20240716
  Serious: No
  Sender: FDA-Public Use
  Company Number: US-ACADIA PHARMACEUTICALS INC.-ACA-2024-PIM-001169

PATIENT
  Sex: Male
  Weight: 57 kg

DRUGS (15)
  1. NUPLAZID [Suspect]
     Active Substance: PIMAVANSERIN TARTRATE
     Indication: Parkinson^s disease psychosis
     Dosage: 34 MILLIGRAM, QD
     Route: 048
  2. NUPLAZID [Suspect]
     Active Substance: PIMAVANSERIN TARTRATE
     Indication: Hallucination
  3. NUPLAZID [Suspect]
     Active Substance: PIMAVANSERIN TARTRATE
     Indication: Delusion
  4. CARBIDOPA LEVODOPA [Concomitant]
     Active Substance: CARBIDOPA\LEVODOPA
  5. QUETIAPINE [Concomitant]
     Active Substance: QUETIAPINE
  6. SELEGILINE [Concomitant]
     Active Substance: SELEGILINE
  7. ROPINIROLE [Concomitant]
     Active Substance: ROPINIROLE
     Indication: Hallucination
  8. ROPINIROLE [Concomitant]
     Active Substance: ROPINIROLE
     Indication: Delusion
  9. ROPINIROLE [Concomitant]
     Active Substance: ROPINIROLE
     Indication: Parkinson^s disease
  10. MELATONIN [Concomitant]
     Active Substance: MELATONIN
  11. METOPROLOL [Concomitant]
     Active Substance: METOPROLOL
  12. VITAMINS [Concomitant]
     Active Substance: VITAMINS
  13. NIACIN [Concomitant]
     Active Substance: NIACIN
  14. SILDENAFIL [Concomitant]
     Active Substance: SILDENAFIL
  15. VITAMIN D3 [Concomitant]
     Active Substance: CHOLECALCIFEROL

REACTIONS (8)
  - Memory impairment [Not Recovered/Not Resolved]
  - Ill-defined disorder [Not Recovered/Not Resolved]
  - Constipation [Not Recovered/Not Resolved]
  - Gait disturbance [Not Recovered/Not Resolved]
  - Hallucination, visual [Not Recovered/Not Resolved]
  - Hallucination [Not Recovered/Not Resolved]
  - Drug ineffective [Not Recovered/Not Resolved]
  - Hallucination [Recovering/Resolving]
